FAERS Safety Report 17965344 (Version 1)
Quarter: 2020Q2

REPORT INFORMATION
  Report Type: Spontaneous
  Country: JP (occurrence: JP)
  Receive Date: 20200630
  Receipt Date: 20200630
  Transmission Date: 20200714
  Serious: Yes (Other)
  Sender: FDA-Public Use
  Company Number: JP-PAIPHARMA-2020-JP-000200

PATIENT
  Age: 57 Year
  Sex: Female
  Weight: 49 kg

DRUGS (6)
  1. ANAGLIPTIN [Concomitant]
     Active Substance: ANAGLIPTIN
     Dosage: 200 MG DAILY
  2. TELMISARTAN. [Suspect]
     Active Substance: TELMISARTAN
     Indication: HYPERTENSION
     Dosage: 40 MG DAILY
  3. PREDNISOLONE SODIUM PHOSPHATE ORAL SOLUTION 20 MG/5 ML [Suspect]
     Active Substance: PREDNISOLONE SODIUM PHOSPHATE
     Indication: OPTIC NEURITIS
     Dosage: 30 MG DAILY
     Route: 048
  4. SULFATRIM [Suspect]
     Active Substance: SULFAMETHOXAZOLE\TRIMETHOPRIM
     Indication: INFECTION PROPHYLAXIS
     Dosage: 800 MG AND 160 MG DAILY
  5. INSULIN GLARGINE [Concomitant]
     Active Substance: INSULIN GLARGINE
     Dosage: 36 UNITS DAILY
  6. METFORMIN [Concomitant]
     Active Substance: METFORMIN HYDROCHLORIDE
     Dosage: 500 MG DAILY

REACTIONS (3)
  - Hyponatraemia [Unknown]
  - Renal tubular acidosis [Unknown]
  - Hyperkalaemia [Unknown]
